FAERS Safety Report 6584213-9 (Version None)
Quarter: 2010Q1

REPORT INFORMATION
  Report Type: 
  Country: None (occurrence: None)
  Receive Date: 20100216
  Receipt Date: 20100111
  Transmission Date: 20100710
  Serious: No
  Sender: FDA-Public Use
  Company Number: US-ABBOTT-10P-163-0618653-00

PATIENT
  Sex: Male
  Weight: 156.63 kg

DRUGS (10)
  1. SIMCOR [Suspect]
     Indication: BLOOD CHOLESTEROL INCREASED
     Dosage: 500/20 MG
     Route: 048
     Dates: start: 20091210
  2. AMLODIPINE [Concomitant]
     Indication: DRUG USE FOR UNKNOWN INDICATION
  3. LOTENSIN [Concomitant]
     Indication: DRUG USE FOR UNKNOWN INDICATION
  4. ALLOPURINOL [Concomitant]
     Indication: DRUG USE FOR UNKNOWN INDICATION
  5. COLCHICINE [Concomitant]
     Indication: DRUG USE FOR UNKNOWN INDICATION
  6. ASPIRIN [Concomitant]
     Indication: DRUG USE FOR UNKNOWN INDICATION
  7. ALBUTEROL [Concomitant]
     Indication: DRUG USE FOR UNKNOWN INDICATION
     Dosage: INHALER
     Route: 055
  8. GLUCOSAMINE [Concomitant]
     Indication: DRUG USE FOR UNKNOWN INDICATION
  9. CHONDROITIN [Concomitant]
     Indication: DRUG USE FOR UNKNOWN INDICATION
  10. FLUCONAISE NASAL SPRAY [Concomitant]
     Indication: DRUG USE FOR UNKNOWN INDICATION

REACTIONS (5)
  - FEELING HOT [None]
  - GOUT [None]
  - PAIN IN EXTREMITY [None]
  - PARAESTHESIA [None]
  - PRURITUS [None]
